FAERS Safety Report 5602674-6 (Version None)
Quarter: 2008Q1

REPORT INFORMATION
  Report Type: 
  Country: None (occurrence: None)
  Receive Date: 20080125
  Receipt Date: 20080118
  Transmission Date: 20080703
  Serious: Yes (Hospitalization, Other)
  Sender: FDA-Public Use
  Company Number: US-ASTRAZENECA-2008UW01435

PATIENT
  Age: 43 Year
  Sex: Female
  Weight: 88 kg

DRUGS (4)
  1. SEROQUEL [Suspect]
     Indication: BIPOLAR I DISORDER
     Route: 048
  2. CELEXA [Concomitant]
  3. VISTARIL [Concomitant]
  4. TRAZODONE HCL [Concomitant]

REACTIONS (2)
  - NERVE INJURY [None]
  - RESTLESS LEGS SYNDROME [None]
